FAERS Safety Report 11068665 (Version 1)
Quarter: 2015Q2

REPORT INFORMATION
  Report Type: Spontaneous
  Country: US (occurrence: None)
  Receive Date: 20150424
  Receipt Date: 20150424
  Transmission Date: 20150821
  Serious: Yes (Other)
  Sender: FDA-Public Use
  Company Number: None

PATIENT
  Age: 64 Year
  Sex: Female
  Weight: 75.75 kg

DRUGS (16)
  1. T4 [Concomitant]
     Active Substance: LEVOTHYROXINE
  2. PROGESTERONE. [Concomitant]
     Active Substance: PROGESTERONE
  3. VITAMIN B COMPLEX [Concomitant]
     Active Substance: CYANOCOBALAMIN\DEXPANTHENOL\NIACINAMIDE\PYRIDOXINE HYDROCHLORIDE\RIBOFLAVIN 5^-PHOSPHATE SODIUM\THIAMINE HYDROCHLORIDE\VITAMIN B COMPLEX
  4. OMEGA 3 [Concomitant]
     Active Substance: OMEGA-3 FATTY ACIDS
  5. ZINC [Concomitant]
     Active Substance: ZINC\ZINC CHLORIDE
  6. SELENIUM [Concomitant]
     Active Substance: SELENIUM
  7. GAMMA TOCOPHEROL [Concomitant]
  8. MAGNESIUM [Concomitant]
     Active Substance: MAGNESIUM
  9. VITAMIN C [Concomitant]
     Active Substance: ASCORBIC ACID
  10. L-GLUTAMINE /00503401/ [Concomitant]
     Active Substance: GLUTAMINE
  11. MONOLAURIN [Concomitant]
  12. PROMETRIUM [Suspect]
     Active Substance: PROGESTERONE
     Indication: MENOPAUSE
     Route: 048
     Dates: start: 20150201, end: 20150325
  13. BIOTIN [Concomitant]
     Active Substance: BIOTIN
  14. T3 [Concomitant]
     Active Substance: LIOTHYRONINE SODIUM
  15. ESTRADIOL. [Concomitant]
     Active Substance: ESTRADIOL
  16. VIT. D3 [Concomitant]

REACTIONS (2)
  - Vertigo [None]
  - Reaction to colouring [None]

NARRATIVE: CASE EVENT DATE: 20150325
